FAERS Safety Report 4794530-0 (Version None)
Quarter: 2005Q4

REPORT INFORMATION
  Report Type: 
  Country: None (occurrence: None)
  Receive Date: 20051011
  Receipt Date: 20050923
  Transmission Date: 20060501
  Serious: Yes (Other)
  Sender: FDA-Public Use
  Company Number: PHEH2005US10614

PATIENT
  Age: 59 Year
  Sex: Male
  Weight: 128 kg

DRUGS (4)
  1. ZOMETA [Suspect]
     Indication: MULTIPLE MYELOMA
     Dosage: 4 MG IV QMONTH
     Route: 042
     Dates: start: 20011101, end: 20050802
  2. OXYCONTIN [Concomitant]
  3. MELPHALAN [Concomitant]
     Indication: CHEMOTHERAPY
  4. PREDNISONE [Concomitant]
     Indication: MULTIPLE MYELOMA
     Dosage: 100 MG, INTERMITTENT
     Dates: start: 20010101

REACTIONS (11)
  - BONE DISORDER [None]
  - BONE LESION [None]
  - ERYTHEMA [None]
  - GINGIVAL INFECTION [None]
  - LYMPH NODE PAIN [None]
  - LYMPHADENOPATHY [None]
  - OEDEMA MOUTH [None]
  - OSTEOMYELITIS [None]
  - OSTEONECROSIS [None]
  - PAIN IN JAW [None]
  - SOFT TISSUE INFECTION [None]
